FAERS Safety Report 5942212-1 (Version None)
Quarter: 2008Q4

REPORT INFORMATION
  Report Type: 
  Country: None (occurrence: None)
  Receive Date: 20081105
  Receipt Date: 20081029
  Transmission Date: 20090506
  Serious: Yes (Hospitalization)
  Sender: FDA-Public Use
  Company Number: US-ABBOTT-08P-163-0484514-00

PATIENT
  Sex: Female

DRUGS (4)
  1. SYNTHROID [Suspect]
     Indication: HYPOTHYROIDISM
     Route: 048
     Dates: start: 19860101
  2. SYNTHROID [Suspect]
     Route: 048
  3. SYNTHROID [Suspect]
     Dosage: 1.25 TABS DAILY
     Route: 048
  4. SYNTHROID [Suspect]
     Dosage: 1.5 TAB DAILY
     Route: 048

REACTIONS (19)
  - AURA [None]
  - BACK PAIN [None]
  - CONSTIPATION [None]
  - DYSPNOEA [None]
  - EYE INFLAMMATION [None]
  - FATIGUE [None]
  - FEELING HOT [None]
  - HAEMORRHOIDS [None]
  - HEADACHE [None]
  - HYPERHIDROSIS [None]
  - MIGRAINE [None]
  - MYALGIA [None]
  - OCULAR HYPERAEMIA [None]
  - OEDEMA PERIPHERAL [None]
  - PAIN IN EXTREMITY [None]
  - PALPITATIONS [None]
  - SINUSITIS [None]
  - TENDERNESS [None]
  - WEIGHT DECREASED [None]
